FAERS Safety Report 5363179-3 (Version None)
Quarter: 2007Q2

REPORT INFORMATION
  Report Type: 
  Country: None (occurrence: None)
  Receive Date: 20070620
  Receipt Date: 20070614
  Transmission Date: 20071010
  Serious: Yes (Hospitalization)
  Sender: FDA-Public Use
  Company Number: PHBS2007JP10179

PATIENT
  Age: 90 Year
  Sex: Female

DRUGS (3)
  1. DIOVAN [Suspect]
     Dosage: 80 MG/DAY
     Route: 048
     Dates: end: 20070501
  2. DIOVAN [Suspect]
     Dosage: 80 MG, BID
     Route: 048
     Dates: start: 20070501
  3. NORVASC [Concomitant]

REACTIONS (10)
  - ANOREXIA [None]
  - BLOOD SODIUM DECREASED [None]
  - DIZZINESS [None]
  - HEADACHE [None]
  - IRRITABILITY [None]
  - MALAISE [None]
  - NAUSEA [None]
  - PALPITATIONS [None]
  - PHARYNGOLARYNGEAL PAIN [None]
  - VOMITING [None]
